FAERS Safety Report 6328935-3 (Version None)
Quarter: 2009Q3

REPORT INFORMATION
  Report Type: 
  Country: None (occurrence: None)
  Receive Date: 20090826
  Receipt Date: 20090817
  Transmission Date: 20100115
  Serious: Yes (Hospitalization, Other)
  Sender: FDA-Public Use
  Company Number: US-BAYER-200930249NA

PATIENT
  Age: 21 Year
  Sex: Female

DRUGS (1)
  1. YAZ [Suspect]
     Indication: DYSMENORRHOEA
     Dates: start: 20070101

REACTIONS (17)
  - ABDOMINAL DISTENSION [None]
  - ABDOMINAL PAIN UPPER [None]
  - AFFECTIVE DISORDER [None]
  - BACK PAIN [None]
  - BREAST TENDERNESS [None]
  - CHEST PAIN [None]
  - DEPRESSION SUICIDAL [None]
  - DIARRHOEA [None]
  - GASTROINTESTINAL PAIN [None]
  - GASTROOESOPHAGEAL REFLUX DISEASE [None]
  - HEPATIC LESION [None]
  - HEPATIC NEOPLASM [None]
  - HEPATIC PAIN [None]
  - MOOD SWINGS [None]
  - OESOPHAGITIS [None]
  - VOMITING [None]
  - WEIGHT DECREASED [None]
